FAERS Safety Report 12188983 (Version 3)
Quarter: 2016Q1

REPORT INFORMATION
  Report Type: Report from Study
  Country: US (occurrence: US)
  Receive Date: 20160317
  Receipt Date: 20160318
  Transmission Date: 20160526
  Serious: Yes (Hospitalization)
  Sender: FDA-Public Use
  Company Number: US-FRESENIUS MEDICAL CARE NORTH AMERICA-1049275

PATIENT
  Age: 55 Year
  Sex: Male
  Weight: 100.45 kg

DRUGS (1)
  1. PHOSLO [Suspect]
     Active Substance: CALCIUM ACETATE
     Indication: HYPERPHOSPHATAEMIA
     Route: 048
     Dates: start: 1992

REACTIONS (3)
  - Overdose [Recovered/Resolved]
  - Coronary artery bypass [Recovered/Resolved]
  - Myocardial infarction [Recovered/Resolved]

NARRATIVE: CASE EVENT DATE: 1992
